FAERS Safety Report 15266087 (Version 1)
Quarter: 2018Q3

REPORT INFORMATION
  Report Type: Spontaneous
  Country: DE (occurrence: DE)
  Receive Date: 20180810
  Receipt Date: 20180810
  Transmission Date: 20181010
  Serious: Yes (Other)
  Sender: FDA-Public Use
  Company Number: DE-ELI_LILLY_AND_COMPANY-DE201807014701

PATIENT
  Age: 74 Year
  Sex: Female

DRUGS (2)
  1. FORSTEO [Suspect]
     Active Substance: TERIPARATIDE
     Indication: OSTEOPOROSIS
     Dosage: UNK UNK, DAILY
     Route: 058
     Dates: start: 201703
  2. FORSTEO [Suspect]
     Active Substance: TERIPARATIDE
     Indication: FEMORAL NECK FRACTURE

REACTIONS (1)
  - Breast cancer [Not Recovered/Not Resolved]
